FAERS Safety Report 7339638-0 (Version None)
Quarter: 2011Q1

REPORT INFORMATION
  Report Type: 
  Country: None (occurrence: None)
  Receive Date: 20110308
  Receipt Date: 20110223
  Transmission Date: 20110831
  Serious: Yes (Hospitalization)
  Sender: FDA-Public Use
  Company Number: DE-GENENTECH-313832

PATIENT
  Sex: Male

DRUGS (14)
  1. BLEOMYCIN SULFATE [Suspect]
     Indication: HODGKIN'S DISEASE
     Dosage: 10 MG/M2, UNK
     Route: 042
     Dates: start: 20110111
  2. PREDNISONE TAB [Suspect]
     Indication: HODGKIN'S DISEASE
     Dosage: 40 MG/M2, UNK
     Route: 065
     Dates: start: 20110111
  3. NEULASTA [Concomitant]
     Indication: PRODUCT USED FOR UNKNOWN INDICATION
     Dosage: 1 DF, QD
     Dates: start: 20110115
  4. PROCARBAZINE [Suspect]
     Indication: HODGKIN'S DISEASE
     Dosage: 100 MG/M2, UNK
     Route: 065
     Dates: start: 20110111
  5. ETOPOSIDE [Suspect]
     Indication: HODGKIN'S DISEASE
     Dosage: 175 MG/M2, UNK
     Route: 065
     Dates: start: 20110111
  6. COTRIM [Concomitant]
     Indication: PRODUCT USED FOR UNKNOWN INDICATION
     Dosage: 1 DF, QD
     Dates: start: 20110206
  7. COTRIM [Concomitant]
     Dosage: 1 DF, QD
     Dates: start: 20110209
  8. RITUXIMAB [Suspect]
     Indication: HODGKIN'S DISEASE
     Dosage: 375 MG/M2, UNK
     Route: 042
     Dates: start: 20110111
  9. LEVOFLOXACIN [Concomitant]
     Indication: PRODUCT USED FOR UNKNOWN INDICATION
     Dosage: 1 DF, QD
     Dates: start: 20110125
  10. LEVOFLOXACIN [Concomitant]
     Dosage: 1 DF, QD
     Dates: start: 20110214, end: 20110220
  11. CYCLOPHOSPHAMIDE [Suspect]
     Indication: HODGKIN'S DISEASE
     Dosage: 1100 MG/M2, UNK
     Route: 065
     Dates: start: 20110111
  12. VINCRISTINE [Suspect]
     Indication: HODGKIN'S DISEASE
     Dosage: 1.4 MG/M2, UNK
     Route: 065
     Dates: start: 20110111
  13. DOXORUBICIN [Suspect]
     Indication: HODGKIN'S DISEASE
     Dosage: 35 MG/M2, UNK
     Route: 042
     Dates: start: 20110111
  14. PANTOZOL (GERMANY) [Concomitant]
     Indication: PRODUCT USED FOR UNKNOWN INDICATION
     Dosage: 1 DF, QD
     Dates: start: 20110206

REACTIONS (5)
  - GENERAL PHYSICAL HEALTH DETERIORATION [None]
  - ANAEMIA [None]
  - INFECTION [None]
  - THROMBOPHLEBITIS [None]
  - DYSPNOEA [None]
